FAERS Safety Report 5975295-3 (Version None)
Quarter: 2008Q4

REPORT INFORMATION
  Report Type: 
  Country: None (occurrence: None)
  Receive Date: 20081202
  Receipt Date: 20081121
  Transmission Date: 20090506
  Serious: Yes (Hospitalization)
  Sender: FDA-Public Use
  Company Number: US-GENENTECH-271222

PATIENT
  Sex: Female
  Weight: 40.816 kg

DRUGS (4)
  1. BEVACIZUMAB [Suspect]
     Indication: NON-SMALL CELL LUNG CANCER
     Dosage: 15 MG/KG, UNK
     Dates: start: 20080625
  2. PEMETREXED [Suspect]
     Indication: NON-SMALL CELL LUNG CANCER
     Dosage: 501 ML/HR, UNK
     Dates: start: 20080625
  3. PEMETREXED [Suspect]
     Dosage: 400 MG/M2, UNK
  4. CARBOPLATIN [Suspect]
     Indication: NON-SMALL CELL LUNG CANCER
     Dosage: 5 AUC, UNK
     Dates: start: 20080625

REACTIONS (4)
  - CEREBRAL ATROPHY [None]
  - CONFUSIONAL STATE [None]
  - ENCEPHALOPATHY [None]
  - HYPERTENSION [None]
